FAERS Safety Report 4689773-0 (Version None)
Quarter: 2005Q2

REPORT INFORMATION
  Report Type: 
  Country: None (occurrence: None)
  Receive Date: 20050608
  Receipt Date: 20050406
  Transmission Date: 20051028
  Serious: No
  Sender: FDA-Public Use
  Company Number: 2005-BP-05677BP

PATIENT
  Age: 69 Year
  Sex: Male

DRUGS (11)
  1. SPIRIVA [Suspect]
     Indication: CHRONIC OBSTRUCTIVE PULMONARY DISEASE
     Dosage: 18 MCG (18 MCG, QD), IH
     Route: 055
     Dates: start: 20040601
  2. SPIRIVA [Suspect]
  3. SPIRIVA [Suspect]
  4. VITAMIN [Concomitant]
  5. CALCIUM GLUCONATE [Concomitant]
  6. ACETAMINOPHEN [Concomitant]
  7. PLENDIL [Concomitant]
  8. SPIRONOLACTONE [Concomitant]
  9. PROTONIX [Concomitant]
  10. FUROSEMIDE [Concomitant]
  11. METOLAZONE [Concomitant]

REACTIONS (1)
  - DYSPNOEA [None]
